FAERS Safety Report 7551076-4 (Version None)
Quarter: 2011Q2

REPORT INFORMATION
  Report Type: 
  Country: None (occurrence: None)
  Receive Date: 20110616
  Receipt Date: 20110608
  Transmission Date: 20111010
  Serious: Yes (Hospitalization, Other)
  Sender: FDA-Public Use
  Company Number: JP-BRISTOL-MYERS SQUIBB COMPANY-15560642

PATIENT
  Age: 33 Year
  Sex: Male
  Weight: 44 kg

DRUGS (3)
  1. BARACLUDE [Suspect]
     Indication: HEPATIC CIRRHOSIS
     Route: 048
     Dates: start: 20110131, end: 20110315
  2. CYSTEINE [Concomitant]
     Dosage: 100 ML:14FEB-25MAY11.80ML 26MAR-05APR11.80ML 07APR-11APR11.60ML13APR2011-25APR11.40 ML27APR11-ONG
     Route: 042
     Dates: start: 20110214
  3. BARACLUDE [Suspect]
     Indication: HEPATITIS B
     Route: 048
     Dates: start: 20110131, end: 20110315

REACTIONS (2)
  - BLOOD CREATINE PHOSPHOKINASE INCREASED [None]
  - LIVER DISORDER [None]
